FAERS Safety Report 21915164 (Version 1)
Quarter: 2023Q1

REPORT INFORMATION
  Report Type: Spontaneous
  Country: US (occurrence: US)
  Receive Date: 20230126
  Receipt Date: 20230126
  Transmission Date: 20230417
  Serious: No
  Sender: FDA-Public Use
  Company Number: US-CATALYST PHARMACEUTICALS, INC-2022CAT00262

PATIENT
  Sex: Female
  Weight: 54.422 kg

DRUGS (14)
  1. FIRDAPSE [Suspect]
     Active Substance: AMIFAMPRIDINE PHOSPHATE
     Indication: Myasthenic syndrome
     Dosage: UNK
     Dates: start: 201901, end: 20191231
  2. FIRDAPSE [Suspect]
     Active Substance: AMIFAMPRIDINE PHOSPHATE
     Dosage: 20 MG, 4X/DAY (EVERY 4 HOURS)
     Route: 048
     Dates: start: 20220316, end: 2022
  3. FIRDAPSE [Suspect]
     Active Substance: AMIFAMPRIDINE PHOSPHATE
     Dosage: 20 MG, 4X/DAY (EVERY 4 HOURS)
     Route: 048
     Dates: start: 2022
  4. BACLOFEN [Concomitant]
     Active Substance: BACLOFEN
     Dosage: 5 MG, 1X/DAY BEFORE BED
  5. PYRIDOSTIGMINE BROMIDE [Concomitant]
     Active Substance: PYRIDOSTIGMINE BROMIDE
     Dosage: 60 MG, 3X/DAY
  6. PYRIDOSTIGMINE BROMIDE SLOW RELEASE [Concomitant]
     Dosage: 180 MG, 1X/DAY BEFORE BED
  7. LEVOTHYROXINE [Concomitant]
     Active Substance: LEVOTHYROXINE
     Dosage: 100 ?G, 1X/DAY IN THE MORNING
  8. PANTOPRAZOLE SODIUM [Concomitant]
     Active Substance: PANTOPRAZOLE SODIUM
     Dosage: 40 MG, 2X/DAY AT LIKE LUNCH AND DINNER
  9. DIGOXIN [Concomitant]
     Active Substance: DIGOXIN
     Dosage: 250 ?G, 1X/DAY EVERY NIGHT
  10. DIGOXIN [Concomitant]
     Active Substance: DIGOXIN
     Dosage: 125 ?G, EVERY 3 DAYS
  11. RESTASIS [Concomitant]
     Active Substance: CYCLOSPORINE
     Dosage: 1 DROP EACH EYE IN MORNING AND AT NIGHT
  12. HUMAN IMMUNOGLOBULIN G [Concomitant]
     Active Substance: HUMAN IMMUNOGLOBULIN G
     Dosage: UNK, 1X/WEEK
     Dates: start: 2019
  13. HUMAN IMMUNOGLOBULIN G [Concomitant]
     Active Substance: HUMAN IMMUNOGLOBULIN G
     Dosage: UNK, EVERY 3 WEEKS
     Dates: end: 2022
  14. EXCEDRIN [Concomitant]
     Active Substance: ACETAMINOPHEN\ASPIRIN\CAFFEINE

REACTIONS (22)
  - Mental status changes [Unknown]
  - Feeling abnormal [Unknown]
  - Bronchitis chronic [Recovered/Resolved]
  - Nocturia [Not Recovered/Not Resolved]
  - Fatigue [Not Recovered/Not Resolved]
  - Decreased interest [Not Recovered/Not Resolved]
  - Choking [Not Recovered/Not Resolved]
  - Product use complaint [Not Recovered/Not Resolved]
  - Dyspnoea [Not Recovered/Not Resolved]
  - Pollakiuria [Not Recovered/Not Resolved]
  - Micturition urgency [Not Recovered/Not Resolved]
  - Asthenia [Not Recovered/Not Resolved]
  - Back injury [Recovering/Resolving]
  - Somnolence [Unknown]
  - Malaise [Unknown]
  - Agitation [Recovered/Resolved]
  - Anger [Recovered/Resolved]
  - Irritability [Recovered/Resolved]
  - Drug hypersensitivity [Not Recovered/Not Resolved]
  - Constipation [Not Recovered/Not Resolved]
  - Dyspepsia [Not Recovered/Not Resolved]
  - Unevaluable event [Not Recovered/Not Resolved]

NARRATIVE: CASE EVENT DATE: 20190101
